FAERS Safety Report 10253238 (Version 1)
Quarter: 2014Q2

REPORT INFORMATION
  Report Type: Spontaneous
  Country: US (occurrence: US)
  Receive Date: 20140623
  Receipt Date: 20140623
  Transmission Date: 20141212
  Serious: No
  Sender: FDA-Public Use
  Company Number: US-ZOGENIX, INC.-2011ZX000464

PATIENT
  Age: 18 Year
  Sex: Female
  Weight: 65.83 kg

DRUGS (2)
  1. SUMAVEL DOSEPRO [Suspect]
     Indication: MIGRAINE
  2. AMITRIPTYLINE [Concomitant]
     Indication: MIGRAINE
     Route: 048

REACTIONS (5)
  - Monoplegia [Recovered/Resolved]
  - Nausea [Recovered/Resolved]
  - Chest discomfort [Recovered/Resolved]
  - Dizziness [Recovered/Resolved]
  - Drug ineffective [Recovered/Resolved]
